FAERS Safety Report 8618810-3 (Version None)
Quarter: 2012Q3

REPORT INFORMATION
  Report Type: 
  Country: None (occurrence: None)
  Receive Date: 20120824
  Receipt Date: 20120817
  Transmission Date: 20120928
  Serious: Yes (Hospitalization, Other)
  Sender: FDA-Public Use
  Company Number: JP-JNJFOC-20120515712

PATIENT
  Sex: Female
  Weight: 48 kg

DRUGS (8)
  1. NICARDIPINE HCL [Concomitant]
     Indication: HYPERTENSION
     Route: 048
     Dates: end: 20120514
  2. GALANTAMINE HYDROBROMIDE [Suspect]
     Indication: DEMENTIA ALZHEIMER'S TYPE
     Route: 048
     Dates: start: 20120327, end: 20120514
  3. PERSANTINE [Concomitant]
     Indication: ANGINA PECTORIS
     Route: 048
     Dates: end: 20120514
  4. PRAVASTATIN SODIUM [Concomitant]
     Indication: HYPERLIPIDAEMIA
     Route: 048
     Dates: end: 20120514
  5. LANSOPRAZOLE [Concomitant]
     Indication: GASTROOESOPHAGEAL REFLUX DISEASE
     Route: 048
     Dates: start: 20120424, end: 20120514
  6. GALANTAMINE HYDROBROMIDE [Suspect]
     Route: 048
     Dates: start: 20120228, end: 20120326
  7. LOXONIN [Concomitant]
     Route: 062
  8. ROCEPHIN [Concomitant]
     Indication: URINARY TRACT INFECTION
     Route: 041
     Dates: start: 20120515, end: 20120517

REACTIONS (6)
  - ELECTROLYTE IMBALANCE [None]
  - URINARY TRACT INFECTION [None]
  - LOSS OF CONSCIOUSNESS [None]
  - INAPPROPRIATE SCHEDULE OF DRUG ADMINISTRATION [None]
  - SICK SINUS SYNDROME [None]
  - GASTROENTERITIS VIRAL [None]
